FAERS Safety Report 5415235-9 (Version None)
Quarter: 2007Q3

REPORT INFORMATION
  Report Type: 
  Country: None (occurrence: None)
  Receive Date: 20070815
  Receipt Date: 20070810
  Transmission Date: 20080115
  Serious: Yes (Hospitalization)
  Sender: FDA-Public Use
  Company Number: US-BRISTOL-MYERS SQUIBB COMPANY-13875042

PATIENT
  Age: 61 Year
  Sex: Male
  Weight: 77 kg

DRUGS (7)
  1. CETUXIMAB [Suspect]
     Indication: SQUAMOUS CELL CARCINOMA
     Dates: start: 20070703
  2. CISPLATIN [Suspect]
     Indication: SQUAMOUS CELL CARCINOMA
     Dates: start: 20070605, end: 20070605
  3. RADIATION THERAPY [Suspect]
     Indication: SQUAMOUS CELL CARCINOMA
     Dates: start: 20070627
  4. KEFLEX [Concomitant]
  5. LIPITOR [Concomitant]
  6. LORTAB [Concomitant]
  7. OXYCODONE HCL [Concomitant]

REACTIONS (9)
  - BLOOD CALCIUM DECREASED [None]
  - BLOOD CREATININE INCREASED [None]
  - LOCALISED OEDEMA [None]
  - MENTAL STATUS CHANGES [None]
  - OEDEMA GENITAL [None]
  - OEDEMA PERIPHERAL [None]
  - PSYCHOTIC DISORDER [None]
  - RENAL FAILURE [None]
  - VENOUS THROMBOSIS [None]
